FAERS Safety Report 14813365 (Version 1)
Quarter: 2018Q2

REPORT INFORMATION
  Report Type: Spontaneous
  Country: ES (occurrence: ES)
  Receive Date: 20180426
  Receipt Date: 20180426
  Transmission Date: 20180711
  Serious: Yes (Hospitalization)
  Sender: FDA-Public Use
  Company Number: ES-UNICHEM PHARMACEUTICALS (USA) INC-UCM201804-000107

PATIENT
  Age: 75 Year
  Sex: Female

DRUGS (9)
  1. AMLODIPINE [Suspect]
     Active Substance: AMLODIPINE BESYLATE
  2. TRAMADOL. [Concomitant]
     Active Substance: TRAMADOL
  3. TEICOPLANIN [Suspect]
     Active Substance: TEICOPLANIN
  4. BEMIPARIN SODIUM [Concomitant]
     Active Substance: BEMIPARIN SODIUM
  5. OMEPRAZOLE. [Concomitant]
     Active Substance: OMEPRAZOLE
  6. PARACETAMOL [Concomitant]
     Active Substance: ACETAMINOPHEN
  7. NOLOTIL (METAMIZOLE) [Concomitant]
     Active Substance: METAMIZOLE
  8. MEROPENEM. [Concomitant]
     Active Substance: MEROPENEM
  9. LOSARTAN. [Concomitant]
     Active Substance: LOSARTAN

REACTIONS (5)
  - Leukocytosis [Recovered/Resolved]
  - Condition aggravated [Recovered/Resolved]
  - Cholestasis [Recovered/Resolved]
  - Pyrexia [Recovered/Resolved]
  - Rash [Recovered/Resolved]
